FAERS Safety Report 6012526-8 (Version None)
Quarter: 2008Q4

REPORT INFORMATION
  Report Type: 
  Country: None (occurrence: None)
  Receive Date: 20081218
  Receipt Date: 20081202
  Transmission Date: 20090506
  Serious: No
  Sender: FDA-Public Use
  Company Number: US-B.I. PHARMACEUTICALS,INC./RIDGEFIELD-2008-BP-18197BP

PATIENT
  Sex: Female

DRUGS (5)
  1. COMBIVENT [Suspect]
     Indication: CHRONIC OBSTRUCTIVE PULMONARY DISEASE
  2. ALBUTEROL [Concomitant]
     Indication: DYSPNOEA
  3. ADVAIR DISKUS 250/50 [Concomitant]
     Indication: DYSPNOEA
  4. MUCINEX [Concomitant]
  5. SPIRIVA [Concomitant]
     Dates: start: 20080201

REACTIONS (1)
  - PALPITATIONS [None]
